FAERS Safety Report 8534995-1 (Version None)
Quarter: 2012Q3

REPORT INFORMATION
  Report Type: 
  Country: None (occurrence: None)
  Receive Date: 20120724
  Receipt Date: 20120720
  Transmission Date: 20120928
  Serious: Yes (Other)
  Sender: FDA-Public Use
  Company Number: US-PFIZER INC-2012165581

PATIENT
  Sex: Female
  Weight: 90.703 kg

DRUGS (4)
  1. PAROXETINE [Concomitant]
     Indication: ANXIETY
  2. PAROXETINE [Concomitant]
     Indication: DEPRESSION
     Dosage: UNK
  3. LYRICA [Suspect]
     Dosage: 150 MG, 2X/DAY
  4. LYRICA [Suspect]
     Indication: FIBROMYALGIA
     Dosage: UNK
     Dates: start: 20090101

REACTIONS (1)
  - BIPOLAR DISORDER [None]
